FAERS Safety Report 4807159-2 (Version None)
Quarter: 2005Q4

REPORT INFORMATION
  Report Type: 
  Country: None (occurrence: None)
  Receive Date: 20051019
  Receipt Date: 20051005
  Transmission Date: 20060501
  Serious: Yes (Other)
  Sender: FDA-Public Use
  Company Number: GBS051018692

PATIENT
  Age: 8 Year
  Sex: Male

DRUGS (3)
  1. STRATTERA [Suspect]
     Indication: ATTENTION DEFICIT/HYPERACTIVITY DISORDER
     Dosage: UNK
  2. CONCERTA [Concomitant]
  3. EQUASYM (METHYLPHENIDATE HYDROCHLORIDE) [Concomitant]

REACTIONS (11)
  - AGGRESSION [None]
  - CRYING [None]
  - DISTURBANCE IN ATTENTION [None]
  - EMOTIONAL DISTRESS [None]
  - INSOMNIA [None]
  - LETHARGY [None]
  - REFUSAL OF EXAMINATION [None]
  - REGRESSIVE BEHAVIOUR [None]
  - SCHOOL REFUSAL [None]
  - SELF ESTEEM DECREASED [None]
  - SUICIDAL IDEATION [None]
